FAERS Safety Report 4916933-3 (Version None)
Quarter: 2006Q1

REPORT INFORMATION
  Report Type: 
  Country: None (occurrence: None)
  Receive Date: 20060221
  Receipt Date: 20051214
  Transmission Date: 20060701
  Serious: Yes (Death, Hospitalization, Other)
  Sender: FDA-Public Use
  Company Number: PHNU2005DE04132

PATIENT
  Age: 65 Year
  Sex: Female

DRUGS (4)
  1. AREDIA [Suspect]
     Indication: METASTASES TO BONE
     Dosage: 60 MG, QMO
     Dates: start: 20000601, end: 20011201
  2. ZOMETA [Suspect]
     Indication: METASTASES TO BONE
     Dosage: 4 MG, QMO
     Dates: start: 20020101
  3. TEMGESIC [Concomitant]
     Route: 065
  4. DURAGESIC-100 [Concomitant]
     Route: 065

REACTIONS (7)
  - DEVICE FAILURE [None]
  - FALL [None]
  - FEMUR FRACTURE [None]
  - PULMONARY EMBOLISM [None]
  - SCINTIGRAPHY [None]
  - SURGERY [None]
  - SYNCOPE [None]
